FAERS Safety Report 15800242 (Version 2)
Quarter: 2019Q3

REPORT INFORMATION
  Report Type: Report from Study
  Country: US (occurrence: US)
  Receive Date: 20190108
  Receipt Date: 20190906
  Transmission Date: 20191004
  Serious: Yes (Hospitalization)
  Sender: FDA-Public Use
  Company Number: US-BAUSCH-BL-2019-000459

PATIENT
  Age: 75 Year
  Sex: Female
  Weight: 86.26 kg

DRUGS (5)
  1. LOSARTAN. [Suspect]
     Active Substance: LOSARTAN
     Indication: PRODUCT USED FOR UNKNOWN INDICATION
     Route: 048
     Dates: end: 2019
  2. SILIQ [Suspect]
     Active Substance: BRODALUMAB
     Indication: PSORIASIS
     Dosage: ON WEEKS 0,1,2?ABOUT 4 YEAR AGO
     Route: 058
     Dates: start: 2015
  3. SILIQ [Suspect]
     Active Substance: BRODALUMAB
     Route: 058
  4. SILIQ [Suspect]
     Active Substance: BRODALUMAB
     Dosage: STOPPED USING AFTER BEING ON IT FOR ABOUT ONE AND A HALF YEARS
     Route: 058
  5. SILIQ [Suspect]
     Active Substance: BRODALUMAB
     Dosage: ABOUT ONE AND A HALF TO TWO YEARS AGO, (ON WEEKS 0.1,2)
     Route: 058

REACTIONS (6)
  - Urinary tract infection [Recovering/Resolving]
  - Lymphadenopathy [Unknown]
  - Psoriatic arthropathy [Unknown]
  - Product dose omission [Unknown]
  - Fluid overload [Recovering/Resolving]
  - Psoriasis [Not Recovered/Not Resolved]

NARRATIVE: CASE EVENT DATE: 2018
